FAERS Safety Report 9987421 (Version 1)
Quarter: 2014Q1

REPORT INFORMATION
  Report Type: Spontaneous
  Country: US (occurrence: US)
  Receive Date: 20140307
  Receipt Date: 20140307
  Transmission Date: 20141002
  Serious: No
  Sender: FDA-Public Use
  Company Number: US-AMGEN-USASP2014009733

PATIENT
  Age: 48 Year
  Sex: Male

DRUGS (6)
  1. ENBREL [Suspect]
     Indication: RHEUMATOID ARTHRITIS
     Dosage: 50 MG, QWK
     Route: 065
     Dates: start: 20120101
  2. ENBREL [Suspect]
     Indication: PSORIATIC ARTHROPATHY
  3. METHOTREXATE [Concomitant]
     Dosage: 25 MG, UNK
     Route: 058
     Dates: start: 2011
  4. HUMIRA [Concomitant]
     Dosage: UNK UNK, BI WEEKLY
  5. CIMZIA [Concomitant]
     Dosage: UNK
     Dates: start: 201303
  6. SIMPONI [Concomitant]
     Dosage: UNK
     Dates: start: 201308, end: 201312

REACTIONS (10)
  - Dyspepsia [Recovered/Resolved]
  - Stomatitis [Recovered/Resolved]
  - Delirium [Recovered/Resolved]
  - Arthralgia [Not Recovered/Not Resolved]
  - Rheumatoid arthritis [Not Recovered/Not Resolved]
  - Joint swelling [Not Recovered/Not Resolved]
  - Arthropathy [Not Recovered/Not Resolved]
  - Sinusitis [Recovered/Resolved]
  - Influenza [Recovered/Resolved]
  - Bronchitis [Recovered/Resolved]
